FAERS Safety Report 6620255-2 (Version None)
Quarter: 2010Q1

REPORT INFORMATION
  Report Type: 
  Country: None (occurrence: None)
  Receive Date: 20100304
  Receipt Date: 20100216
  Transmission Date: 20100710
  Serious: Yes (Death)
  Sender: FDA-Public Use
  Company Number: KV200900723

PATIENT
  Age: 80 Year
  Sex: Female
  Weight: 82.1 kg

DRUGS (10)
  1. ISOSORBIDE MONONITRATE [Suspect]
     Indication: DRUG USE FOR UNKNOWN INDICATION
     Dosage: 30 MG, QD, ORAL
     Route: 048
     Dates: start: 20080117, end: 20080816
  2. COREG [Concomitant]
  3. SYNTHROID [Concomitant]
  4. TRAZODONE HCL [Concomitant]
  5. LISINOPRIL [Concomitant]
  6. ASPIRIN [Concomitant]
  7. VYTORIN [Concomitant]
  8. INSULIN [Concomitant]
  9. LASIX [Concomitant]
  10. PLAVIX [Concomitant]

REACTIONS (23)
  - ANOXIC ENCEPHALOPATHY [None]
  - BUNDLE BRANCH BLOCK LEFT [None]
  - CATARACT [None]
  - CEREBROVASCULAR DISORDER [None]
  - CORONARY ARTERY DISEASE [None]
  - DEPRESSED LEVEL OF CONSCIOUSNESS [None]
  - DYSPNOEA EXERTIONAL [None]
  - EYELIDS PRURITUS [None]
  - FALL [None]
  - HYPERTENSION [None]
  - INJURY [None]
  - ISCHAEMIC CARDIOMYOPATHY [None]
  - LEFT VENTRICULAR DYSFUNCTION [None]
  - LOW DENSITY LIPOPROTEIN INCREASED [None]
  - MITRAL VALVE INCOMPETENCE [None]
  - MYOCARDIAL INFARCTION [None]
  - OBESITY [None]
  - OVERDOSE [None]
  - RESPIRATORY FAILURE [None]
  - TRICUSPID VALVE INCOMPETENCE [None]
  - UNRESPONSIVE TO STIMULI [None]
  - VISION BLURRED [None]
  - VISUAL ACUITY REDUCED [None]
